FAERS Safety Report 14641438 (Version 1)
Quarter: 2018Q1

REPORT INFORMATION
  Report Type: Other
  Country: GB (occurrence: US)
  Receive Date: 20180315
  Receipt Date: 20180315
  Transmission Date: 20180509
  Serious: Yes (Hospitalization, Other)
  Sender: FDA-Public Use
  Company Number: GB-DIMETHAID UK LIMITED-DIM-001147-2018

PATIENT
  Age: 63 Year
  Sex: Male

DRUGS (1)
  1. PENNSAID [Suspect]
     Active Substance: DICLOFENAC SODIUM
     Indication: OSTEOARTHRITIS
     Dosage: UNK
     Route: 065

REACTIONS (7)
  - Abdominal pain [Recovered/Resolved]
  - Constipation [Recovered/Resolved]
  - Large intestinal stenosis [Recovered/Resolved]
  - Weight decreased [Recovered/Resolved]
  - Large intestinal ulcer [Recovered/Resolved]
  - Gastric ulcer [Recovered/Resolved]
  - Microcytic anaemia [Recovered/Resolved]
